FAERS Safety Report 7832425-6 (Version None)
Quarter: 2011Q4

REPORT INFORMATION
  Report Type: 
  Country: None (occurrence: None)
  Receive Date: 20111022
  Receipt Date: 20111012
  Transmission Date: 20120403
  Serious: Yes (Other)
  Sender: FDA-Public Use
  Company Number: US-BAYER-2011-081857

PATIENT
  Age: 70 Year
  Sex: Male
  Weight: 88.435 kg

DRUGS (5)
  1. FISH OIL [Concomitant]
  2. ASPIRIN [Concomitant]
     Dosage: DAILY
  3. ASPIRIN [Suspect]
     Dosage: 500 MG, PRN
     Route: 048
     Dates: start: 20110801, end: 20110826
  4. SIMVASTATIN [Concomitant]
  5. VITAMIN D [Concomitant]

REACTIONS (8)
  - RETCHING [None]
  - THROAT IRRITATION [None]
  - OROPHARYNGEAL DISCOMFORT [None]
  - PRODUCTIVE COUGH [None]
  - CHOKING [None]
  - INSOMNIA [None]
  - DYSPNOEA [None]
  - DYSPHAGIA [None]
